FAERS Safety Report 14601486 (Version 2)
Quarter: 2018Q3

REPORT INFORMATION
  Report Type: Report from Study
  Country: None (occurrence: IT)
  Receive Date: 20180305
  Receipt Date: 20180830
  Transmission Date: 20181010
  Serious: Yes (Other)
  Sender: FDA-Public Use
  Company Number: IT-ABBVIE-18K-083-2272109-00

PATIENT
  Age: 73 Year
  Sex: Male

DRUGS (1)
  1. DUODOPA [Suspect]
     Active Substance: CARBIDOPA\LEVODOPA
     Indication: PARKINSON^S DISEASE
     Dosage: MD 11+3??CR 5??ED 2,5
     Route: 050
     Dates: start: 20161121, end: 20180226

REACTIONS (3)
  - Gastrointestinal necrosis [Recovering/Resolving]
  - Bezoar [Unknown]
  - Device extrusion [Unknown]

NARRATIVE: CASE EVENT DATE: 201802
